FAERS Safety Report 12212332 (Version 1)
Quarter: 2016Q1

REPORT INFORMATION
  Report Type: Report from Study
  Country: IE (occurrence: IE)
  Receive Date: 20160325
  Receipt Date: 20160325
  Transmission Date: 20160526
  Serious: Yes (Death, Other)
  Sender: FDA-Public Use
  Company Number: IE-AMGEN-IRLSP2016036911

PATIENT
  Age: 64 Year
  Sex: Female

DRUGS (10)
  1. FRUSEMIDE                          /00032601/ [Concomitant]
     Active Substance: FUROSEMIDE
     Dosage: 20 MG, ONCE DAILY
     Route: 050
  2. MOTILIUM [Concomitant]
     Active Substance: DOMPERIDONE
     Dosage: 10 MG, TDS
     Route: 050
  3. NEULASTA [Suspect]
     Active Substance: PEGFILGRASTIM
     Indication: CHRONIC LYMPHOCYTIC LEUKAEMIA
     Dosage: 6 MG, POST CHEMOTHERAPY MONTHLY
     Route: 058
     Dates: start: 20160216
  4. ALLOPURINOL. [Concomitant]
     Active Substance: ALLOPURINOL
     Dosage: 300 MG, ONCE DAILY
     Route: 050
  5. VALACICLOVIR [Concomitant]
     Active Substance: VALACYCLOVIR HYDROCHLORIDE
     Dosage: 500 MG, ONCE DAILY
     Route: 050
  6. ZOPICLONE [Concomitant]
     Active Substance: ZOPICLONE
     Dosage: 2.5 MG, ONCE DAILY
     Route: 050
  7. CYCLIZINE [Concomitant]
     Active Substance: CYCLIZINE
     Dosage: 50 MG, PRN
     Route: 050
  8. LANSOPRAZOLE. [Concomitant]
     Active Substance: LANSOPRAZOLE
     Dosage: 30 MG, ONCE DAILY
     Route: 050
  9. CALCICHEW [Concomitant]
     Active Substance: CALCIUM CARBONATE
     Dosage: 1000 MG, ONCE DAILY
     Route: 050
  10. TRAMADOL. [Concomitant]
     Active Substance: TRAMADOL
     Dosage: 50 MG, PRN
     Route: 050

REACTIONS (1)
  - Death [Fatal]

NARRATIVE: CASE EVENT DATE: 201603
